FAERS Safety Report 5112849-0 (Version None)
Quarter: 2006Q3

REPORT INFORMATION
  Report Type: 
  Country: None (occurrence: None)
  Receive Date: 20060922
  Receipt Date: 20060911
  Transmission Date: 20061208
  Serious: Yes (Other)
  Sender: FDA-Public Use
  Company Number: DEWYE890711SEP06

PATIENT
  Sex: Female

DRUGS (4)
  1. ENBREL [Suspect]
     Indication: RHEUMATOID ARTHRITIS
     Route: 058
     Dates: start: 20040701
  2. COLECALCIFEROL [Concomitant]
  3. FOLIC ACID [Concomitant]
     Route: 048
  4. CALCIUM GLUCONATE [Concomitant]
     Route: 048

REACTIONS (2)
  - TOOTH INFECTION [None]
  - TOOTH LOSS [None]
